FAERS Safety Report 7664901-3 (Version None)
Quarter: 2011Q3

REPORT INFORMATION
  Report Type: 
  Country: None (occurrence: None)
  Receive Date: 20110806
  Receipt Date: 20110720
  Transmission Date: 20111222
  Serious: No
  Sender: FDA-Public Use
  Company Number: US-ABBOTT-10P-163-0634669-00

PATIENT
  Sex: Female
  Weight: 54.48 kg

DRUGS (11)
  1. NIASPAN [Suspect]
     Dates: start: 20100101, end: 20100801
  2. FISH OIL [Concomitant]
     Indication: PRODUCT USED FOR UNKNOWN INDICATION
  3. CRESTOR [Suspect]
     Dates: start: 20100312, end: 20100317
  4. CRESTOR [Suspect]
     Route: 048
     Dates: start: 20100317
  5. ASPIRIN [Concomitant]
     Indication: PRODUCT USED FOR UNKNOWN INDICATION
  6. CALCIUM CARBONATE [Concomitant]
     Indication: BLOOD CALCIUM
  7. GEMFIBROZIL [Concomitant]
     Indication: HIGH DENSITY LIPOPROTEIN DECREASED
  8. NIASPAN [Suspect]
     Indication: BLOOD CHOLESTEROL INCREASED
     Route: 048
     Dates: start: 20081101, end: 20090101
  9. ATENOLOL [Concomitant]
     Indication: MITRAL VALVE PROLAPSE
  10. CLONIDINE [Concomitant]
     Indication: HOT FLUSH
  11. CRESTOR [Suspect]
     Indication: BLOOD CHOLESTEROL
     Dates: start: 20100106, end: 20100312

REACTIONS (4)
  - MUSCLE SPASMS [None]
  - LOW DENSITY LIPOPROTEIN INCREASED [None]
  - MYALGIA [None]
  - HIGH DENSITY LIPOPROTEIN DECREASED [None]
